FAERS Safety Report 4484991-9 (Version None)
Quarter: 2004Q3

REPORT INFORMATION
  Report Type: 
  Country: None (occurrence: None)
  Receive Date: 20040921
  Receipt Date: 20030925
  Transmission Date: 20050211
  Serious: Yes (Hospitalization, Disabling)
  Sender: FDA-Public Use
  Company Number: 163-20785-03090727

PATIENT
  Age: 78 Year
  Sex: Female

DRUGS (5)
  1. THALOMID [Suspect]
     Indication: METASTASES TO LUNG
     Dosage: 100 MG, QD, ORAL
     Route: 048
     Dates: start: 20030610, end: 20030815
  2. THALOMID [Suspect]
     Indication: RENAL CELL CARCINOMA STAGE UNSPECIFIED
     Dosage: 100 MG, QD, ORAL
     Route: 048
     Dates: start: 20030610, end: 20030815
  3. PROCRIT [Suspect]
     Indication: METASTASES TO LUNG
     Dosage: 40,000 UNITS, QW, SUBCUTANEOUS
     Route: 058
     Dates: start: 20030610, end: 20030815
  4. PROCRIT [Suspect]
     Indication: RENAL CELL CARCINOMA STAGE UNSPECIFIED
     Dosage: 40,000 UNITS, QW, SUBCUTANEOUS
     Route: 058
     Dates: start: 20030610, end: 20030815
  5. MVI (MULTIVITAMINS) [Concomitant]

REACTIONS (10)
  - BLOOD ALBUMIN DECREASED [None]
  - BLOOD GLUCOSE INCREASED [None]
  - EMBOLIC STROKE [None]
  - FACIAL PALSY [None]
  - GLOBULINS INCREASED [None]
  - HEMIPARESIS [None]
  - HYPOPHOSPHATAEMIA [None]
  - URINARY INCONTINENCE [None]
  - URINE ANALYSIS ABNORMAL [None]
  - VOCAL CORD PARALYSIS [None]
